FAERS Safety Report 8822161 (Version 2)
Quarter: 2012Q4

REPORT INFORMATION
  Report Type: 
  Country: US (occurrence: US)
  Receive Date: 20121003
  Receipt Date: 20121114
  Transmission Date: 20130627
  Serious: Yes (Hospitalization)
  Sender: FDA-Public Use
  Company Number: US-AMGEN-USASP2012061829

PATIENT
  Age: 39 Year
  Sex: Female

DRUGS (1)
  1. ENBREL [Suspect]
     Indication: RHEUMATOID ARTHRITIS
     Dosage: 50 mg, qwk
     Dates: start: 19980101

REACTIONS (7)
  - Skin disorder [Unknown]
  - Adverse drug reaction [Recovered/Resolved]
  - Urticaria [Recovered/Resolved]
  - Rheumatoid arthritis [Recovered/Resolved]
  - Fatigue [Not Recovered/Not Resolved]
  - Breast pain [Not Recovered/Not Resolved]
  - Mammoplasty [Recovered/Resolved]
